FAERS Safety Report 6265239-1 (Version None)
Quarter: 2009Q3

REPORT INFORMATION
  Report Type: 
  Country: None (occurrence: None)
  Receive Date: 20090713
  Receipt Date: 20090709
  Transmission Date: 20100115
  Serious: No
  Sender: FDA-Public Use
  Company Number: US-B.I. PHARMACEUTICALS,INC./RIDGEFIELD-2008-BP-09796BP

PATIENT
  Sex: Female

DRUGS (14)
  1. SPIRIVA [Suspect]
     Indication: CHRONIC OBSTRUCTIVE PULMONARY DISEASE
     Dosage: 18 MCG
     Route: 055
     Dates: start: 20070101
  2. SPIRIVA [Suspect]
     Indication: EMPHYSEMA
     Dosage: 36 MCG
     Route: 048
     Dates: start: 20080609, end: 20080609
  3. ALBUTEROL [Concomitant]
     Indication: CHRONIC OBSTRUCTIVE PULMONARY DISEASE
     Route: 055
  4. PREDNISONE TAB [Concomitant]
     Indication: CHRONIC OBSTRUCTIVE PULMONARY DISEASE
     Route: 048
  5. DUONEB [Concomitant]
     Indication: CHRONIC OBSTRUCTIVE PULMONARY DISEASE
     Route: 055
  6. COUMADIN [Concomitant]
     Indication: ATRIAL FIBRILLATION
     Route: 048
  7. PROZAC [Concomitant]
     Indication: OSTEOPOROSIS
     Route: 048
  8. FOSAMAX [Concomitant]
     Indication: DEPRESSION
     Route: 048
  9. LEVOXYL [Concomitant]
     Indication: HYPOTHYROIDISM
     Route: 048
  10. TAMBOCOR [Concomitant]
     Indication: ATRIAL FIBRILLATION
     Route: 048
  11. HYDROCHLOROTHIAZIDE [Concomitant]
     Indication: HYPERTENSION
     Route: 048
  12. VERAPAMIL [Concomitant]
     Indication: HYPERTENSION
     Route: 048
  13. FORADIL [Concomitant]
     Indication: CHRONIC OBSTRUCTIVE PULMONARY DISEASE
     Route: 048
  14. OXYGEN [Concomitant]
     Indication: CHRONIC OBSTRUCTIVE PULMONARY DISEASE
     Route: 055

REACTIONS (5)
  - DYSPNOEA [None]
  - GLOSSODYNIA [None]
  - INCORRECT ROUTE OF DRUG ADMINISTRATION [None]
  - ORAL DISCOMFORT [None]
  - VISION BLURRED [None]
